FAERS Safety Report 6866415-7 (Version None)
Quarter: 2010Q3

REPORT INFORMATION
  Report Type: 
  Country: None (occurrence: None)
  Receive Date: 20100722
  Receipt Date: 20100719
  Transmission Date: 20110219
  Serious: Yes (Death, Life-Threatening, Hospitalization)
  Sender: FDA-Public Use
  Company Number: FR-BRISTOL-MYERS SQUIBB COMPANY-15199664

PATIENT
  Age: 59 Year
  Sex: Female

DRUGS (6)
  1. PRAVIGARD PAC (COPACKAGED) [Suspect]
     Route: 048
  2. PREVISCAN [Suspect]
     Route: 048
  3. CORDARONE [Concomitant]
  4. HEMIGOXINE NATIVELLE [Concomitant]
  5. NEBILOX [Concomitant]
  6. STABLON [Concomitant]

REACTIONS (1)
  - CEREBRAL HAEMORRHAGE [None]
